FAERS Safety Report 12652153 (Version 1)
Quarter: 2016Q3

REPORT INFORMATION
  Report Type: Spontaneous
  Country: AR (occurrence: AR)
  Receive Date: 20160815
  Receipt Date: 20160815
  Transmission Date: 20161109
  Serious: Yes (Other)
  Sender: FDA-Public Use
  Company Number: AR-GLAXOSMITHKLINE-AR2016GSK116670

PATIENT
  Age: 45 Year
  Sex: Male

DRUGS (1)
  1. NICOTINELL [Suspect]
     Active Substance: NICOTINE
     Indication: EX-TOBACCO USER
     Dosage: 36 DF, QD
     Dates: start: 201411

REACTIONS (5)
  - Ill-defined disorder [Unknown]
  - Pharyngeal disorder [Unknown]
  - Suicidal ideation [Unknown]
  - Overdose [Unknown]
  - Anxiety [Unknown]
